FAERS Safety Report 8584622-2 (Version None)
Quarter: 2012Q3

REPORT INFORMATION
  Report Type: 
  Country: None (occurrence: None)
  Receive Date: 20120810
  Receipt Date: 20120731
  Transmission Date: 20120928
  Serious: Yes (Hospitalization)
  Sender: FDA-Public Use
  Company Number: US-BAYER-2010-002227

PATIENT
  Age: 32 Year
  Sex: Female
  Weight: 77.098 kg

DRUGS (17)
  1. DROSPIRENONE AND ETHINYL ESTRADIOL [Suspect]
     Dosage: UNK
     Dates: start: 20050831, end: 20070831
  2. ALDACTONE [Concomitant]
     Dosage: 25 MG, DAILY
     Route: 048
     Dates: start: 20070926
  3. LORTAB [Concomitant]
     Dosage: 7.5/500 MG
     Dates: start: 20080601
  4. TRAMADOL HCL [Concomitant]
     Dosage: 50 MG, UNK
     Dates: start: 20080601
  5. YASMIN [Suspect]
     Indication: METRORRHAGIA
  6. PLAVIX [Concomitant]
     Dosage: 75 MG, UNK
     Dates: start: 20080601
  7. KLONOPIN [Concomitant]
     Dosage: 0.5 MG, BID AS NEEDED
     Route: 048
     Dates: start: 20070926
  8. CHANTIX [Concomitant]
  9. YASMIN [Suspect]
     Indication: CONTRACEPTION
  10. ALLEGRA [Concomitant]
     Dosage: 180 MG, UNK
     Dates: start: 20080601
  11. CLINDAMYCIN [Concomitant]
     Dosage: 1 %, BID
     Route: 061
     Dates: start: 20070926
  12. YASMIN [Suspect]
     Indication: DYSMENORRHOEA
     Dosage: UNK
     Dates: start: 20050831, end: 20070831
  13. YASMIN [Suspect]
     Indication: HIDRADENITIS
  14. CYMBALTA [Concomitant]
     Dosage: 30 MG, UNK
     Dates: start: 20071101, end: 20091201
  15. CRESTOR [Concomitant]
  16. BACTRIM [Concomitant]
     Indication: HIDRADENITIS
     Dosage: 100 MG, UNK
     Dates: start: 20050101
  17. LISINOPRIL [Concomitant]
     Dosage: 2.5 MG, UNK
     Dates: start: 20080601

REACTIONS (3)
  - MYOCARDIAL INFARCTION [None]
  - ARTERIOSCLEROSIS [None]
  - CARDIAC DISORDER [None]
